FAERS Safety Report 7465928-7 (Version None)
Quarter: 2011Q2

REPORT INFORMATION
  Report Type: 
  Country: None (occurrence: None)
  Receive Date: 20110428
  Receipt Date: 20110413
  Transmission Date: 20111010
  Serious: Yes (Other)
  Sender: FDA-Public Use
  Company Number: 2011MA003883

PATIENT
  Age: 60 Year
  Sex: Male

DRUGS (3)
  1. FLUDARABINE PHOSPHATE FOR INJECTION USP, 50 MG PER VIAL (ATLLC) (FLUDR [Suspect]
     Indication: WALDENSTROM'S MACROGLOBULINAEMIA
  2. CYCLOPHOSPHAMIDE [Concomitant]
  3. RITUXIMAB [Concomitant]

REACTIONS (4)
  - MYELODYSPLASTIC SYNDROME [None]
  - DYSPLASIA [None]
  - ACUTE MYELOID LEUKAEMIA [None]
  - REFRACTORY ANAEMIA [None]
